FAERS Safety Report 5069933-X (Version None)
Quarter: 2006Q3

REPORT INFORMATION
  Report Type: 
  Country: None (occurrence: None)
  Receive Date: 20060731
  Receipt Date: 20060713
  Transmission Date: 20061208
  Serious: Yes (Hospitalization)
  Sender: FDA-Public Use
  Company Number: 2005-129474-NL

PATIENT
  Age: 65 Year
  Sex: Male

DRUGS (9)
  1. NANDROLONE DECANOATE [Suspect]
     Dosage: INTRAMUSCULAR
     Route: 030
     Dates: start: 20050302, end: 20050530
  2. DARBEPOETIN ALFA [Concomitant]
  3. ALUMINUM HYDROXIDE [Concomitant]
  4. RENEGEL [Concomitant]
  5. ASPIRIN [Concomitant]
  6. 1-ALPHA-CALCIDOL [Concomitant]
  7. AMLODIPINE [Concomitant]
  8. LANSOPRAZOLE [Concomitant]
  9. DIALYRIT [Concomitant]

REACTIONS (4)
  - EPISTAXIS [None]
  - ESCHERICHIA SEPSIS [None]
  - LOBAR PNEUMONIA [None]
  - PLATELET COUNT DECREASED [None]
